FAERS Safety Report 6155406-X (Version None)
Quarter: 2009Q2

REPORT INFORMATION
  Report Type: 
  Country: None (occurrence: None)
  Receive Date: 20090413
  Receipt Date: 20090318
  Transmission Date: 20091009
  Serious: Yes (Death)
  Sender: FDA-Public Use
  Company Number: OPER20090030

PATIENT
  Age: 32 Year
  Sex: Male

DRUGS (5)
  1. OPANA ER [Suspect]
     Indication: ARTHRALGIA
     Dosage: 40 MG, 2 TABS BID, PER ORAL
     Route: 048
     Dates: start: 20081001
  2. ENDOCET 7.5MG/325MG [Suspect]
     Dosage: 4-6 TABS PER DAY
  3. LORAZEPAM [Suspect]
  4. CLONAZEPAM [Suspect]
  5. BACLOFEN [Suspect]
     Dosage: 10 MG, 4 TIMES A DAY

REACTIONS (4)
  - DRUG EFFECT DECREASED [None]
  - DRUG INTERACTION [None]
  - INADEQUATE ANALGESIA [None]
  - SEDATION [None]
